FAERS Safety Report 17615408 (Version 2)
Quarter: 2020Q2

REPORT INFORMATION
  Report Type: Spontaneous
  Country: DE (occurrence: DE)
  Receive Date: 20200402
  Receipt Date: 20200413
  Transmission Date: 20200713
  Serious: Yes (Hospitalization, Other)
  Sender: FDA-Public Use
  Company Number: DE-PFIZER INC-2020136499

PATIENT
  Age: 47 Year
  Sex: Male

DRUGS (8)
  1. DELIX [RAMIPRIL] [Concomitant]
     Active Substance: RAMIPRIL
     Indication: HYPERTENSION
     Dosage: 5 MG, 1X/DAY
  2. LAMOTRIGIN DESITIN [Concomitant]
     Active Substance: LAMOTRIGINE
     Indication: SEIZURE
  3. MEROPENEM. [Suspect]
     Active Substance: MEROPENEM
     Indication: SEPSIS
  4. MEROPENEM. [Suspect]
     Active Substance: MEROPENEM
     Indication: BACTERIAL INFECTION
     Dosage: 1 G, CYCLIC (TAKE EVERY 8 HOURS ) (1-1-1)
     Route: 042
     Dates: start: 20200229, end: 20200302
  5. VIMPAT [Concomitant]
     Active Substance: LACOSAMIDE
     Indication: SEIZURE
     Dosage: UNK, 2X/DAY (1-0-1)
     Route: 042
  6. DELIX [RAMIPRIL] [Concomitant]
     Active Substance: RAMIPRIL
     Indication: BLOOD PRESSURE INCREASED
  7. LAMOTRIGIN DESITIN [Concomitant]
     Active Substance: LAMOTRIGINE
     Indication: BACTERIAL INFECTION
     Dosage: 300 MG, 1X/DAY 1-0-2
     Route: 048
  8. LEVETIRACETAM UCB [Concomitant]
     Active Substance: LEVETIRACETAM
     Indication: SEIZURE
     Dosage: 3000 MG, 1X/DAY (1-0-2)
     Route: 048

REACTIONS (3)
  - Transaminases increased [Recovering/Resolving]
  - Acute hepatic failure [Recovering/Resolving]
  - International normalised ratio increased [Recovered/Resolved]

NARRATIVE: CASE EVENT DATE: 20200229
